FAERS Safety Report 5310301-0 (Version None)
Quarter: 2007Q2

REPORT INFORMATION
  Report Type: 
  Country: None (occurrence: None)
  Receive Date: 20070427
  Receipt Date: 20070312
  Transmission Date: 20071010
  Serious: Yes (Hospitalization)
  Sender: FDA-Public Use
  Company Number: US-SANOFI-SYNTHELABO-A03200702261

PATIENT
  Sex: Male
  Weight: 92.4 kg

DRUGS (1)
  1. AMBIEN [Suspect]
     Indication: SLEEP DISORDER
     Dosage: UNK
     Route: 048
     Dates: start: 20010203, end: 20010203

REACTIONS (7)
  - ABNORMAL BEHAVIOUR [None]
  - AGGRESSION [None]
  - AGITATION [None]
  - AMNESIA [None]
  - ASTHENIA [None]
  - CARDIAC DISORDER [None]
  - HALLUCINATION, VISUAL [None]
